FAERS Safety Report 5223451-4 (Version None)
Quarter: 2007Q1

REPORT INFORMATION
  Report Type: 
  Country: None (occurrence: None)
  Receive Date: 20070125
  Receipt Date: 20070111
  Transmission Date: 20070707
  Serious: Yes (Other)
  Sender: FDA-Public Use
  Company Number: 234922

PATIENT
  Sex: Female

DRUGS (7)
  1. XOLAIR [Suspect]
     Indication: ASTHMA
     Dosage: SEE IMAGE, SUBCUTANEOUS
     Route: 058
     Dates: start: 20061108
  2. XOLAIR [Suspect]
     Indication: ASTHMA
     Dosage: SEE IMAGE, SUBCUTANEOUS
     Route: 058
     Dates: start: 20061201
  3. MEDICATION (GENERIC COMPONENT (S) [Concomitant]
  4. SYMBICORT [Concomitant]
  5. ANTIBIOTICS (ANTIBIOTICS NOS) [Concomitant]
  6. DUOVENT (FENOTEROL IPRATROPIUM BROMIDE) [Concomitant]
  7. SINGULAIR [Concomitant]

REACTIONS (9)
  - COUGH [None]
  - ECZEMA [None]
  - HEADACHE [None]
  - MALAISE [None]
  - NO THERAPEUTIC RESPONSE [None]
  - REFUSAL OF TREATMENT BY PATIENT [None]
  - RESPIRATORY DISORDER [None]
  - SINUSITIS [None]
  - SKIN REACTION [None]
